FAERS Safety Report 7415208-0 (Version None)
Quarter: 2011Q2

REPORT INFORMATION
  Report Type: 
  Country: None (occurrence: None)
  Receive Date: 20110414
  Receipt Date: 20110408
  Transmission Date: 20111010
  Serious: Yes (Life-Threatening, Hospitalization)
  Sender: FDA-Public Use
  Company Number: PHHY2010US90055

PATIENT
  Sex: Female

DRUGS (5)
  1. TRIAMCINOLONE [Concomitant]
     Indication: DERMATITIS ATOPIC
     Dosage: 0.1 UNK, BID
     Route: 061
     Dates: start: 20100208, end: 20100801
  2. BACTRIM [Concomitant]
     Indication: HORDEOLUM
     Dosage: UNK
     Route: 048
     Dates: start: 20090101
  3. FLUORIDE [Concomitant]
     Indication: DENTAL CARE
     Dosage: 0.5 MG, QD
     Route: 048
     Dates: start: 20080101, end: 20090101
  4. ELIDEL [Suspect]
     Indication: DERMATITIS ATOPIC
     Dosage: UNK
     Route: 061
     Dates: start: 20090101, end: 20100601
  5. BLEACH BATHS [Concomitant]
     Indication: DERMATITIS ATOPIC
     Dosage: HALF CUP TO ONE CUP
     Route: 061
     Dates: start: 20090201, end: 20100801

REACTIONS (4)
  - PALLOR [None]
  - PETECHIAE [None]
  - ACUTE LYMPHOCYTIC LEUKAEMIA [None]
  - DECREASED ACTIVITY [None]
